FAERS Safety Report 21416874 (Version 5)
Quarter: 2023Q1

REPORT INFORMATION
  Report Type: Report from Study
  Country: US (occurrence: US)
  Receive Date: 20221006
  Receipt Date: 20230223
  Transmission Date: 20230418
  Serious: No
  Sender: FDA-Public Use
  Company Number: US-NOVARTISTESTPH-NVSC2022US224773

PATIENT
  Sex: Female

DRUGS (1)
  1. COSENTYX [Suspect]
     Active Substance: SECUKINUMAB
     Indication: Psoriasis
     Dosage: UNK
     Route: 065
     Dates: start: 20220901

REACTIONS (12)
  - Nasal congestion [Unknown]
  - Cough [Unknown]
  - Alopecia [Unknown]
  - Condition aggravated [Unknown]
  - Chronic obstructive pulmonary disease [Unknown]
  - Pain in extremity [Unknown]
  - Arthritis [Unknown]
  - Arthralgia [Unknown]
  - Stress [Unknown]
  - Skin disorder [Unknown]
  - Pruritus [Unknown]
  - Drug ineffective [Unknown]
